FAERS Safety Report 18483804 (Version 1)
Quarter: 2020Q4

REPORT INFORMATION
  Report Type: Spontaneous
  Country: CN (occurrence: CN)
  Receive Date: 20201109
  Receipt Date: 20201109
  Transmission Date: 20210114
  Serious: Yes (Other)
  Sender: FDA-Public Use
  Company Number: CN-BAXTER-2020BAX022507

PATIENT
  Age: 55 Year
  Sex: Female
  Weight: 54 kg

DRUGS (4)
  1. ENDOXAN [Suspect]
     Active Substance: CYCLOPHOSPHAMIDE
     Indication: BREAST CANCER FEMALE
     Dosage: ENDOXAN 950 MG + NS 50 ML, FIRST CHEMOTHERAPY
     Route: 042
     Dates: start: 20200902, end: 20200902
  2. 0.9% SODIUM CHLORIDE INJECTION [Suspect]
     Active Substance: SODIUM CHLORIDE
     Dosage: TERRY 134 MG + NS 100 ML, FIRST CHEMOTHERAPY
     Route: 041
     Dates: start: 20200902, end: 20200902
  3. 0.9% SODIUM CHLORIDE INJECTION [Suspect]
     Active Substance: SODIUM CHLORIDE
     Indication: MEDICATION DILUTION
     Dosage: ENDOXAN 950 MG + NS 50 ML, FIRST CHEMOTHERAPY
     Route: 042
     Dates: start: 20200902, end: 20200902
  4. TERRY (EPIRUBICIN HYDROCHLORIDE) [Suspect]
     Active Substance: EPIRUBICIN HYDROCHLORIDE
     Indication: BREAST CANCER FEMALE
     Dosage: TERRY 134 MG + NS 100 ML, FIRST CHEMOTHERAPY
     Route: 041
     Dates: start: 20200902, end: 20200902

REACTIONS (1)
  - Agranulocytosis [Recovered/Resolved]

NARRATIVE: CASE EVENT DATE: 20200911
